FAERS Safety Report 5081172-5 (Version None)
Quarter: 2006Q3

REPORT INFORMATION
  Report Type: 
  Country: None (occurrence: None)
  Receive Date: 20060810
  Receipt Date: 20060801
  Transmission Date: 20061208
  Serious: Yes (Other)
  Sender: FDA-Public Use
  Company Number: 2006-07-1806

PATIENT
  Age: 44 Year
  Sex: Male
  Weight: 106.5953 kg

DRUGS (8)
  1. PEG-INTRON [Suspect]
     Indication: HEPATITIS C
     Dosage: SUBCUTAENOUS
     Route: 058
     Dates: start: 20060503
  2. REBETOL [Suspect]
     Indication: HEPATITIS C
     Dosage: ORAL
     Route: 048
     Dates: start: 20060503
  3. ACETAMINOPHEN [Concomitant]
  4. CENTRUM [Concomitant]
  5. GEMFIBROZIL [Concomitant]
  6. NAPROXEN [Concomitant]
  7. SLOW-FE EXTENDED RELEASE [Concomitant]
  8. TRAZODONE HCL [Concomitant]

REACTIONS (17)
  - BLISTER [None]
  - DEHYDRATION [None]
  - DRUG DOSE OMISSION [None]
  - EYE IRRITATION [None]
  - HEADACHE [None]
  - LUNG INFECTION [None]
  - MEMORY IMPAIRMENT [None]
  - MUSCLE SPASMS [None]
  - OEDEMA PERIPHERAL [None]
  - PAIN [None]
  - PHOTOSENSITIVITY REACTION [None]
  - RASH [None]
  - RESPIRATORY DISORDER [None]
  - SKIN INFECTION [None]
  - SLEEP DISORDER [None]
  - STAPHYLOCOCCAL INFECTION [None]
  - WHEEZING [None]
